FAERS Safety Report 4661385-4 (Version None)
Quarter: 2005Q2

REPORT INFORMATION
  Report Type: 
  Country: None (occurrence: None)
  Receive Date: 20050512
  Receipt Date: 20020705
  Transmission Date: 20051028
  Serious: Yes (Death)
  Sender: FDA-Public Use
  Company Number: 05-05-0782

PATIENT
  Age: 27 Year
  Sex: Female

DRUGS (4)
  1. FLUOXETINE [Suspect]
     Indication: DEPRESSION
     Dosage: 20MG QD
     Dates: start: 20011129
  2. EFFEXOR [Suspect]
     Indication: DEPRESSION
     Dosage: 37.5MG X2 ORAL
     Route: 048
     Dates: start: 20011025, end: 20011113
  3. EFFEXOR [Suspect]
     Indication: PSYCHOTIC DISORDER
     Dosage: 37.5MG X2 ORAL
     Route: 048
     Dates: start: 20011025, end: 20011113
  4. SULPIRIDE [Suspect]
     Dosage: 100MG X2  ORAL
     Route: 048
     Dates: start: 20011025, end: 20011113

REACTIONS (3)
  - COMPLETED SUICIDE [None]
  - DEPRESSION [None]
  - ELEVATED MOOD [None]
